FAERS Safety Report 4847937-7 (Version None)
Quarter: 2005Q4

REPORT INFORMATION
  Report Type: 
  Country: None (occurrence: None)
  Receive Date: 20051207
  Receipt Date: 20051207
  Transmission Date: 20060501
  Serious: Yes (Hospitalization)
  Sender: FDA-Public Use
  Company Number: None

PATIENT
  Age: 54 Year
  Sex: Female
  Weight: 66.2252 kg

DRUGS (3)
  1. GEMCITABINE     100MG/ML      LILLY [Suspect]
     Indication: PANCREATIC CARCINOMA METASTATIC
     Dosage: 1000MG/M2   DAY 1 + 15     IV DRIP
     Route: 041
     Dates: start: 20050629, end: 20051102
  2. CISPLATIN [Suspect]
     Indication: PANCREATIC CARCINOMA METASTATIC
     Dosage: 20MG/M2     DAY 1 + 15     IV DRIP
     Route: 041
     Dates: start: 20050629, end: 20051102
  3. BEVACIZUMAB     25MG/ML       GENENTECH [Suspect]
     Indication: PANCREATIC CARCINOMA METASTATIC
     Dosage: 10MG/KG    DAY 1 + 15     IV DRIP
     Route: 041
     Dates: start: 20050629, end: 20051102

REACTIONS (3)
  - ABDOMINAL PAIN [None]
  - NAUSEA [None]
  - OBSTRUCTION [None]
